FAERS Safety Report 9527741 (Version 1)
Quarter: 2013Q1

REPORT INFORMATION
  Report Type: Spontaneous
  Country: US (occurrence: None)
  Receive Date: 20130314
  Receipt Date: 20130314
  Transmission Date: 20140127
  Serious: No
  Sender: FDA-Public Use
  Company Number: 1210USA013052

PATIENT
  Age: 58 Year
  Sex: Male

DRUGS (3)
  1. PEGINTRON (PEGINTERFERON ALFA-2B) POWDER FOR INJECTION [Suspect]
     Indication: HEPATITIS C
     Dates: start: 20121019
  2. RIBAVIRIN (RIBAVIRIN) CAPSULE [Suspect]
     Indication: HEPATITIS C
     Dates: start: 20121019
  3. VICTRELIS (BOCEPREVIR) CAPSULE [Suspect]
     Indication: HEPATITIS C
     Dates: start: 20121116

REACTIONS (10)
  - Dry mouth [None]
  - Dizziness [None]
  - White blood cell count decreased [None]
  - Weight decreased [None]
  - Decreased appetite [None]
  - Nausea [None]
  - Insomnia [None]
  - Decreased appetite [None]
  - Palpitations [None]
  - Oral mucosal blistering [None]
